FAERS Safety Report 4837847-3 (Version None)
Quarter: 2005Q4

REPORT INFORMATION
  Report Type: 
  Country: None (occurrence: None)
  Receive Date: 20051024
  Receipt Date: 20050705
  Transmission Date: 20060501
  Serious: No
  Sender: FDA-Public Use
  Company Number: 214832

PATIENT
  Age: 44 Year
  Sex: Female
  Weight: 56.7 kg

DRUGS (7)
  1. XOLAIR [Suspect]
     Indication: ASTHMA
     Dosage: 150 MG, Q4W, SUBCUTANEOUS
     Route: 058
     Dates: start: 20050406
  2. ZYRTEC [Concomitant]
  3. FLONASE [Concomitant]
  4. ELESTAT (EPINASTINE HYDROCHLORIDE) [Concomitant]
  5. PULMICORT [Concomitant]
  6. ADVAIR (SALMETEROL XINAFOATE, FLUTICASONE PROPIONATE) [Concomitant]
  7. PROVENTIL (ALBUTEROL, ALBUTEROL SULFATE) [Concomitant]

REACTIONS (2)
  - HEADACHE [None]
  - NAUSEA [None]
